FAERS Safety Report 24201284 (Version 1)
Quarter: 2024Q3

REPORT INFORMATION
  Report Type: Spontaneous
  Country: US (occurrence: US)
  Receive Date: 20240812
  Receipt Date: 20240812
  Transmission Date: 20241016
  Serious: Yes (Hospitalization, Other)
  Sender: CADILA
  Company Number: US-CPL-004510

PATIENT
  Sex: Male

DRUGS (6)
  1. FLUOXETINE [Suspect]
     Active Substance: FLUOXETINE HYDROCHLORIDE
     Route: 064
  2. QUETIAPINE [Suspect]
     Active Substance: QUETIAPINE
     Route: 064
  3. CLONAZEPAM [Suspect]
     Active Substance: CLONAZEPAM
     Route: 064
  4. HYDROMORPHONE [Suspect]
     Active Substance: HYDROMORPHONE
     Route: 064
  5. OXYCODONE [Suspect]
     Active Substance: OXYCODONE
     Route: 064
  6. HEROIN [Suspect]
     Active Substance: DIAMORPHINE
     Route: 064

REACTIONS (6)
  - Decerebrate posture [Unknown]
  - Cerebral dysgenesis [Unknown]
  - Opisthotonus [Unknown]
  - Hypertonia [Unknown]
  - Premature baby [Unknown]
  - Foetal exposure during pregnancy [Unknown]
